FAERS Safety Report 9465954 (Version 2)
Quarter: 2013Q3

REPORT INFORMATION
  Report Type: Spontaneous
  Country: US (occurrence: US)
  Receive Date: 20130820
  Receipt Date: 20130906
  Transmission Date: 20140515
  Serious: Yes (Hospitalization, Disabling)
  Sender: FDA-Public Use
  Company Number: US-BAYER-2013-098830

PATIENT
  Age: 52 Year
  Sex: Female

DRUGS (4)
  1. NEXAVAR [Suspect]
     Indication: OVARIAN CANCER
     Dosage: 200 MG, BID
     Route: 048
  2. NEXAVAR [Suspect]
     Indication: OVARIAN CANCER
     Dosage: 200 MG, BID
     Route: 048
  3. MORPHINE [Concomitant]
     Dosage: 30 MG EVERY 12 HRS
  4. MORPHINE [Concomitant]
     Dosage: 15 MG EVERY 3/4 HRS AS NEEDED

REACTIONS (2)
  - Palmar-plantar erythrodysaesthesia syndrome [None]
  - Off label use [None]
